FAERS Safety Report 7202482-9 (Version None)
Quarter: 2010Q4

REPORT INFORMATION
  Report Type: 
  Country: None (occurrence: None)
  Receive Date: 20101229
  Receipt Date: 20101220
  Transmission Date: 20110411
  Serious: Yes (Hospitalization)
  Sender: FDA-Public Use
  Company Number: B0691180A

PATIENT
  Age: 61 Year
  Sex: Male

DRUGS (2)
  1. REQUIP [Suspect]
     Indication: PARKINSON'S DISEASE
     Dosage: 12MG PER DAY
     Route: 048
     Dates: start: 20100701, end: 20101130
  2. SOTALOL HCL [Concomitant]

REACTIONS (4)
  - ASTHENIA [None]
  - DIZZINESS [None]
  - FATIGUE [None]
  - FEELING HOT [None]
